FAERS Safety Report 11753433 (Version 2)
Quarter: 2015Q4

REPORT INFORMATION
  Report Type: Spontaneous
  Country: GB (occurrence: GB)
  Receive Date: 20151119
  Receipt Date: 20151209
  Transmission Date: 20160304
  Serious: Yes (Other)
  Sender: FDA-Public Use
  Company Number: GB-WATSON-2015-24566

PATIENT
  Age: 68 Year
  Sex: Female

DRUGS (4)
  1. BISOPROLOL (UNKNOWN) [Suspect]
     Active Substance: BISOPROLOL
     Indication: PRODUCT USED FOR UNKNOWN INDICATION
     Dosage: UNK, UNKNOWN
     Route: 065
  2. SIMVASTATIN (UNKNOWN) [Suspect]
     Active Substance: SIMVASTATIN
     Indication: PRODUCT USED FOR UNKNOWN INDICATION
     Dosage: UNK, UNKNOWN
     Route: 065
  3. MOXONIDINE [Concomitant]
     Active Substance: MOXONIDINE
     Indication: PRODUCT USED FOR UNKNOWN INDICATION
     Dosage: UNK, UNKNOWN
     Route: 065
  4. SANDOZ AMLODIPINE                  /00972402/ [Suspect]
     Active Substance: AMLODIPINE BESYLATE
     Indication: PRODUCT USED FOR UNKNOWN INDICATION
     Dosage: 2.5 MG, UNKNOWN
     Route: 048
     Dates: start: 201412

REACTIONS (14)
  - Dyskinesia [Unknown]
  - Hypoaesthesia [Unknown]
  - Raynaud^s phenomenon [Unknown]
  - Acne [Unknown]
  - Rash [Unknown]
  - Oral pain [Unknown]
  - Blood pressure increased [Unknown]
  - Pigmentation disorder [Unknown]
  - Rash macular [Unknown]
  - Drug hypersensitivity [Unknown]
  - Burning sensation [Unknown]
  - Oral mucosal blistering [Unknown]
  - Coating in mouth [Unknown]
  - Oral discomfort [Unknown]
